FAERS Safety Report 18932191 (Version 1)
Quarter: 2021Q1

REPORT INFORMATION
  Report Type: Other
  Country: NL (occurrence: NL)
  Receive Date: 20210224
  Receipt Date: 20210224
  Transmission Date: 20210420
  Serious: Yes (Other)
  Sender: FDA-Public Use
  Company Number: NL-CELLTRION INC.-2021NL002132

PATIENT

DRUGS (7)
  1. METHOTREXAAT [METHOTREXATE] [Concomitant]
     Active Substance: METHOTREXATE
     Dosage: TABLET 15 MG/WEEK
  2. PANTOPRAZOL TABLET MSR 40MG / PANTOZOL TABLET MSR 40 MG [Concomitant]
     Dosage: 40 MILLIGRAM, TABLET
  3. FOLIUMZUUR [Concomitant]
     Active Substance: FOLIC ACID
  4. INFLIXIMAB (UNKNOWN) [Suspect]
     Active Substance: INFLIXIMAB
     Indication: CROHN^S DISEASE
     Dosage: 400 MILLIGRAM, EVERY 8 WEEKS
     Dates: start: 202005
  5. CARBASALAATCALCIUM [Concomitant]
     Active Substance: CARBASPIRIN CALCIUM
     Dosage: 100 MILLIGRAM
  6. FUROSEMIDE. [Concomitant]
     Active Substance: FUROSEMIDE
     Dosage: TABLET, 20 MILLIGRAM
  7. AMITRIPTYLINE HCL [Concomitant]
     Active Substance: AMITRIPTYLINE
     Dosage: TABLET, 10 MILLIGRAM

REACTIONS (2)
  - Factor VIII deficiency [Recovering/Resolving]
  - Overdose [Unknown]
